FAERS Safety Report 19042553 (Version 1)
Quarter: 2021Q1

REPORT INFORMATION
  Report Type: Spontaneous
  Country: CA (occurrence: CA)
  Receive Date: 20210323
  Receipt Date: 20210323
  Transmission Date: 20210420
  Serious: Yes (Hospitalization)
  Sender: FDA-Public Use
  Company Number: CA-TILLOMEDPR-2021-EPL-000841

PATIENT
  Age: 6 Year
  Sex: Female
  Weight: 19 kg

DRUGS (16)
  1. CHOLECALCIFEROL [Concomitant]
     Active Substance: CHOLECALCIFEROL
  2. POLYETHYLENE GLYCOL [Concomitant]
     Active Substance: POLYETHYLENE GLYCOLS
  3. SALBUTAMOL [Concomitant]
     Active Substance: ALBUTEROL
     Dosage: INHALATION
  4. CALCIUM LACTATE [Concomitant]
     Active Substance: CALCIUM LACTATE
  5. DIMENHYDRINATE. [Concomitant]
     Active Substance: DIMENHYDRINATE
  6. DOMPERIDON [Concomitant]
     Active Substance: DOMPERIDONE
  7. LEVETIRACETAM. [Concomitant]
     Active Substance: LEVETIRACETAM
  8. ONE ALPHA [Concomitant]
     Active Substance: ALFACALCIDOL
  9. ZOLEDRONIC ACID [Suspect]
     Active Substance: ZOLEDRONIC ACID
     Indication: OSTEOPOROSIS
     Dosage: ONCE, SOLUTION INTRAVENOUS
     Route: 042
  10. ACETAMINOPHEN. [Concomitant]
     Active Substance: ACETAMINOPHEN
  11. FLUTICASONE. [Concomitant]
     Active Substance: FLUTICASONE
  12. CELECOXIB. [Concomitant]
     Active Substance: CELECOXIB
  13. FERROUS FUMARATE [Concomitant]
     Active Substance: FERROUS FUMARATE
  14. OMEPRAZOLE. [Concomitant]
     Active Substance: OMEPRAZOLE
  15. TOPIRAMATE. [Concomitant]
     Active Substance: TOPIRAMATE
  16. VIGABATRIN. [Concomitant]
     Active Substance: VIGABATRIN

REACTIONS (7)
  - Generalised tonic-clonic seizure [Recovered/Resolved]
  - Off label use [Unknown]
  - Hypophosphataemia [Recovered/Resolved]
  - Vomiting [Recovered/Resolved]
  - Hypocalcaemia [Recovered/Resolved]
  - Gastrointestinal viral infection [Recovered/Resolved]
  - Pyrexia [Recovered/Resolved]
